FAERS Safety Report 9135558 (Version 3)
Quarter: 2015Q4

REPORT INFORMATION
  Report Type: Spontaneous
  Country: US (occurrence: US)
  Receive Date: 20130219
  Receipt Date: 20151217
  Transmission Date: 20160305
  Serious: No
  Sender: FDA-Public Use
  Company Number: US-BRISTOL-MYERS SQUIBB COMPANY-16767121

PATIENT
  Age: 54 Year
  Sex: Female
  Weight: 54.42 kg

DRUGS (3)
  1. VITAMINS [Concomitant]
     Active Substance: VITAMINS
  2. METHOTREXATE [Concomitant]
     Active Substance: METHOTREXATE
  3. ABATACEPT [Suspect]
     Active Substance: ABATACEPT
     Indication: RHEUMATOID ARTHRITIS
     Dosage: LAST DATE OF INJECTION:  28JUN2012  5TH INJ
     Route: 058
     Dates: start: 2007

REACTIONS (4)
  - Upper respiratory tract infection [Unknown]
  - Drug dose omission [Unknown]
  - Muscle atrophy [Unknown]
  - Arthralgia [Unknown]

NARRATIVE: CASE EVENT DATE: 20120705
